FAERS Safety Report 21103550 (Version 5)
Quarter: 2023Q2

REPORT INFORMATION
  Report Type: Report from Study
  Country: US (occurrence: US)
  Receive Date: 20220720
  Receipt Date: 20230519
  Transmission Date: 20230721
  Serious: No
  Sender: FDA-Public Use
  Company Number: US-NOVARTISTESTPH-NVSC2022US163639

PATIENT
  Sex: Female

DRUGS (2)
  1. ENTRESTO [Suspect]
     Active Substance: SACUBITRIL\VALSARTAN
     Indication: Product use in unapproved indication
     Dosage: 1 DOSAGE FORM, BID (49/51 MG) (MIDDLE STRENGTH)
     Route: 048
     Dates: start: 20220317, end: 20220615
  2. ENTRESTO [Suspect]
     Active Substance: SACUBITRIL\VALSARTAN
     Dosage: 50 MG (24/26 MG) (LOW STRENGTH)
     Route: 065

REACTIONS (2)
  - Hypoacusis [Unknown]
  - Hypotension [Recovered/Resolved]
